FAERS Safety Report 22090547 (Version 7)
Quarter: 2023Q4

REPORT INFORMATION
  Report Type: Report from Study
  Country: US (occurrence: US)
  Receive Date: 20230313
  Receipt Date: 20231102
  Transmission Date: 20240110
  Serious: Yes (Hospitalization, Other)
  Sender: FDA-Public Use
  Company Number: US-ABBVIE-4335359

PATIENT
  Age: 70 Year
  Sex: Male
  Weight: 111 kg

DRUGS (10)
  1. HUMIRA [Suspect]
     Active Substance: ADALIMUMAB
     Indication: Psoriatic arthropathy
     Dosage: FORM STRENGTH: 40 MILLIGRAM
     Route: 058
     Dates: start: 20220921, end: 20230208
  2. HUMIRA [Suspect]
     Active Substance: ADALIMUMAB
     Dosage: FORM STRENGTH: 40 MILLIGRAM
     Route: 058
     Dates: start: 20230329
  3. HUMIRA [Suspect]
     Active Substance: ADALIMUMAB
     Dosage: FORM STRENGTH: 40 MILLIGRAM
     Route: 058
     Dates: end: 2023
  4. GLIMEPIRIDE [Concomitant]
     Active Substance: GLIMEPIRIDE
     Indication: Diabetes mellitus
     Route: 065
  5. FENOFIBRATE [Suspect]
     Active Substance: FENOFIBRATE
     Indication: Product used for unknown indication
     Route: 065
  6. PROMETHAZINE [Concomitant]
     Active Substance: PROMETHAZINE HYDROCHLORIDE
     Indication: Gastrooesophageal reflux disease
     Route: 065
  7. LISINOPRIL [Concomitant]
     Active Substance: LISINOPRIL
     Indication: Product used for unknown indication
     Route: 065
  8. METFORMIN [Concomitant]
     Active Substance: METFORMIN HYDROCHLORIDE
     Indication: Product used for unknown indication
     Route: 065
  9. TAMSULOSIN [Concomitant]
     Active Substance: TAMSULOSIN
     Indication: Prostatomegaly
     Route: 065
  10. CORTISONE [Suspect]
     Active Substance: CORTISONE
     Indication: Pain
     Route: 065
     Dates: start: 2022

REACTIONS (16)
  - Muscle rupture [Recovering/Resolving]
  - Neck pain [Not Recovered/Not Resolved]
  - Joint range of motion decreased [Recovering/Resolving]
  - Psoriasis [Recovering/Resolving]
  - Hypersensitivity [Unknown]
  - Neck deformity [Unknown]
  - Influenza like illness [Recovered/Resolved]
  - COVID-19 [Recovered/Resolved]
  - Shoulder operation [Recovered/Resolved]
  - Rotator cuff syndrome [Recovering/Resolving]
  - Arthritis [Recovering/Resolving]
  - Arthralgia [Recovering/Resolving]
  - Drug ineffective [Unknown]
  - Tendon rupture [Recovering/Resolving]
  - Oropharyngeal pain [Unknown]
  - Nerve compression [Unknown]

NARRATIVE: CASE EVENT DATE: 20220901
